FAERS Safety Report 19299043 (Version 1)
Quarter: 2021Q2

REPORT INFORMATION
  Report Type: Other
  Country: BE (occurrence: BE)
  Receive Date: 20210525
  Receipt Date: 20210525
  Transmission Date: 20210717
  Serious: Yes (Death, Hospitalization)
  Sender: FDA-Public Use
  Company Number: BE-ROCHE-2833190

PATIENT
  Age: 53 Year
  Sex: Female

DRUGS (6)
  1. TRASTUZUMAB. [Suspect]
     Active Substance: TRASTUZUMAB
     Indication: HORMONE RECEPTOR NEGATIVE HER2 POSITIVE BREAST CANCER
     Route: 065
     Dates: start: 2019
  2. PERTUZUMAB. [Suspect]
     Active Substance: PERTUZUMAB
     Indication: HORMONE RECEPTOR NEGATIVE HER2 POSITIVE BREAST CANCER
     Route: 065
  3. EPIRUBICIN [Suspect]
     Active Substance: EPIRUBICIN
     Indication: HORMONE RECEPTOR NEGATIVE HER2 POSITIVE BREAST CANCER
     Route: 065
     Dates: start: 2019
  4. PACLITAXEL. [Suspect]
     Active Substance: PACLITAXEL
     Indication: HORMONE RECEPTOR NEGATIVE HER2 POSITIVE BREAST CANCER
     Route: 065
     Dates: start: 2019
  5. COTRIMOXAZOLE [Concomitant]
     Active Substance: SULFAMETHOXAZOLE\TRIMETHOPRIM
     Indication: PROPHYLAXIS
  6. CYCLOPHOSPHAMIDE. [Suspect]
     Active Substance: CYCLOPHOSPHAMIDE
     Indication: HORMONE RECEPTOR NEGATIVE HER2 POSITIVE BREAST CANCER
     Route: 065
     Dates: start: 2019

REACTIONS (11)
  - Death [Fatal]
  - General physical health deterioration [Unknown]
  - Pneumothorax [Unknown]
  - Vasogenic cerebral oedema [Unknown]
  - Hydrocephalus [Unknown]
  - Metastases to central nervous system [Not Recovered/Not Resolved]
  - Septic shock [Unknown]
  - Craniocerebral injury [Unknown]
  - Brain herniation [Unknown]
  - Intracranial pressure increased [Unknown]
  - Pneumonia [Unknown]
